FAERS Safety Report 11647969 (Version 2)
Quarter: 2015Q4

REPORT INFORMATION
  Report Type: Report from Study
  Country: BR (occurrence: BR)
  Receive Date: 20151021
  Receipt Date: 20151222
  Transmission Date: 20160304
  Serious: Yes (Hospitalization)
  Sender: FDA-Public Use
  Company Number: PHHY2015BR134287

PATIENT
  Sex: Female

DRUGS (1)
  1. ACLASTA [Suspect]
     Active Substance: ZOLEDRONIC ACID
     Indication: OSTEOPOROSIS
     Dosage: 1 DF, Q12MO
     Route: 065
     Dates: start: 2012

REACTIONS (11)
  - Presyncope [Recovering/Resolving]
  - Pain [Recovering/Resolving]
  - Cardiac disorder [Recovering/Resolving]
  - Body height decreased [Recovering/Resolving]
  - Dyspnoea [Unknown]
  - Speech disorder [Unknown]
  - Abasia [Recovering/Resolving]
  - Spinal pain [Recovering/Resolving]
  - Feeling abnormal [Recovering/Resolving]
  - Malaise [Unknown]
  - Fall [Recovering/Resolving]
